FAERS Safety Report 6054524-4 (Version None)
Quarter: 2009Q1

REPORT INFORMATION
  Report Type: 
  Country: None (occurrence: None)
  Receive Date: 20090127
  Receipt Date: 20090120
  Transmission Date: 20090719
  Serious: Yes (Other)
  Sender: FDA-Public Use
  Company Number: PHHY2008DE32090

PATIENT
  Sex: Male

DRUGS (3)
  1. DIOVAN HCT [Suspect]
     Indication: HYPERTENSION
     Dosage: 1 DF, QD
     Route: 048
     Dates: start: 20070601, end: 20081218
  2. CARMEN [Concomitant]
     Dosage: 10 MG, UNK
     Route: 048
     Dates: start: 20070101
  3. NIVADIL [Concomitant]

REACTIONS (3)
  - CHOKING [None]
  - COUGH [None]
  - SYNCOPE [None]
